FAERS Safety Report 12920627 (Version 1)
Quarter: 2016Q4

REPORT INFORMATION
  Report Type: Spontaneous
  Country: US (occurrence: US)
  Receive Date: 20161108
  Receipt Date: 20161108
  Transmission Date: 20170207
  Serious: Yes (Other)
  Sender: FDA-Public Use
  Company Number: US-BAXTER-2016BAX056250

PATIENT
  Age: 31 Year
  Sex: Male

DRUGS (27)
  1. VINCRISTINE [Suspect]
     Active Substance: VINCRISTINE
     Indication: ACUTE LYMPHOCYTIC LEUKAEMIA
     Dosage: CYCLE 1
     Route: 065
     Dates: start: 20160122
  2. METHOTREXATE. [Suspect]
     Active Substance: METHOTREXATE
     Indication: ACUTE LYMPHOCYTIC LEUKAEMIA
     Dosage: CYCLE
     Route: 037
     Dates: start: 20160122
  3. ETOPOSIDE. [Suspect]
     Active Substance: ETOPOSIDE
     Route: 065
     Dates: start: 20160824, end: 20160914
  4. METHOTREXATE. [Suspect]
     Active Substance: METHOTREXATE
     Dosage: 2 CYCLES
     Route: 037
     Dates: start: 20160613
  5. BACITRACIN. [Concomitant]
     Active Substance: BACITRACIN
     Indication: PRODUCT USED FOR UNKNOWN INDICATION
     Dosage: 500 UNIT/G
     Route: 061
  6. BACTRIM DS [Concomitant]
     Active Substance: SULFAMETHOXAZOLE\TRIMETHOPRIM
     Indication: PRODUCT USED FOR UNKNOWN INDICATION
     Dosage: (STRENGTH: 800 TO 160 MG); 1 TAB TWICE DAILY TWICE WEEKLY
     Route: 048
  7. ZOLPIDEM [Concomitant]
     Active Substance: ZOLPIDEM\ZOLPIDEM TARTRATE
     Indication: SEDATIVE THERAPY
     Dosage: 1 TAB AS NEEDED
     Route: 048
  8. PEGASPARGASE [Suspect]
     Active Substance: PEGASPARGASE
     Dosage: 2 CYCLES
     Route: 065
     Dates: start: 20160613
  9. AMBISONE [Concomitant]
     Active Substance: AMPHOTERICIN B
     Indication: PRODUCT USED FOR UNKNOWN INDICATION
     Route: 042
  10. ETOPOSIDE. [Suspect]
     Active Substance: ETOPOSIDE
     Indication: ACUTE LYMPHOCYTIC LEUKAEMIA
     Dosage: 2 CYCLES
     Route: 065
     Dates: start: 20160613
  11. METHOTREXATE. [Suspect]
     Active Substance: METHOTREXATE
     Route: 037
     Dates: start: 20160515
  12. PEGASPARGASE [Suspect]
     Active Substance: PEGASPARGASE
     Indication: ACUTE LYMPHOCYTIC LEUKAEMIA
     Dosage: CYCLE 2
     Route: 065
     Dates: start: 20160122
  13. METHOTREXATE. [Suspect]
     Active Substance: METHOTREXATE
     Route: 037
     Dates: start: 20160824, end: 20160914
  14. PEPCID [Concomitant]
     Active Substance: FAMOTIDINE
     Indication: PRODUCT USED FOR UNKNOWN INDICATION
     Route: 048
  15. ROXICODONE [Concomitant]
     Active Substance: OXYCODONE HYDROCHLORIDE
     Indication: PAIN
     Dosage: 1-2 TABS AS NEEDED
     Route: 048
  16. CYTOXAN [Suspect]
     Active Substance: CYCLOPHOSPHAMIDE
     Indication: ACUTE LYMPHOCYTIC LEUKAEMIA
     Dosage: CYCLE 2
     Route: 065
     Dates: start: 20160122
  17. BLINATUMOMAB [Suspect]
     Active Substance: BLINATUMOMAB
     Indication: ACUTE LYMPHOCYTIC LEUKAEMIA
     Route: 065
     Dates: start: 20160809, end: 20160824
  18. ZOVIRAX [Concomitant]
     Active Substance: ACYCLOVIR
     Indication: PRODUCT USED FOR UNKNOWN INDICATION
     Dosage: 0.5 TABS
     Route: 048
  19. CYTARABINE. [Suspect]
     Active Substance: CYTARABINE
     Indication: ACUTE LYMPHOCYTIC LEUKAEMIA
     Dosage: CYCLE 1
     Route: 065
     Dates: start: 20160122
  20. CYTARABINE. [Suspect]
     Active Substance: CYTARABINE
     Route: 065
     Dates: start: 20160824, end: 20160914
  21. IFOSFAMIDE FOR INJECTION [Suspect]
     Active Substance: IFOSFAMIDE
     Indication: ACUTE LYMPHOCYTIC LEUKAEMIA
     Route: 065
     Dates: start: 20160824, end: 20160914
  22. VINCRISTINE [Suspect]
     Active Substance: VINCRISTINE
     Route: 065
     Dates: start: 20160824, end: 20160914
  23. CYTARABINE. [Suspect]
     Active Substance: CYTARABINE
     Dosage: 2 CYCLES
     Route: 065
     Dates: start: 20160613
  24. DAUNORUBICIN [Suspect]
     Active Substance: DAUNORUBICIN
     Indication: ACUTE LYMPHOCYTIC LEUKAEMIA
     Dosage: CYCLE 1
     Route: 065
     Dates: start: 20160122
  25. PEGASPARGASE [Suspect]
     Active Substance: PEGASPARGASE
     Route: 065
     Dates: start: 20160515
  26. MERCAPTOPURINE. [Suspect]
     Active Substance: MERCAPTOPURINE
     Indication: ACUTE LYMPHOCYTIC LEUKAEMIA
     Dosage: CYCLE 2
     Route: 065
     Dates: start: 20160122
  27. ATIVAN [Concomitant]
     Active Substance: LORAZEPAM
     Indication: NAUSEA
     Dosage: 1-2 TABS AS NEEDED
     Route: 048

REACTIONS (1)
  - Malignant neoplasm progression [Unknown]
